FAERS Safety Report 9106947 (Version 1)
Quarter: 2013Q1

REPORT INFORMATION
  Report Type: Spontaneous
  Country: US (occurrence: US)
  Receive Date: 20130221
  Receipt Date: 20130221
  Transmission Date: 20140127
  Serious: No
  Sender: FDA-Public Use
  Company Number: US-009507513-1302USA003561

PATIENT
  Age: 52 Year
  Sex: Female

DRUGS (4)
  1. AZASITE [Suspect]
     Indication: ANTIBIOTIC PROPHYLAXIS
     Dosage: 1 GTT, QD
     Route: 047
     Dates: start: 20090106, end: 2009
  2. AZASITE [Suspect]
     Indication: INFLAMMATION
     Dosage: 1 GTT, QD
     Route: 047
     Dates: start: 2009, end: 200905
  3. RESTASIS [Concomitant]
  4. OMEGA-3 MARINE TRIGLYCERIDES [Concomitant]

REACTIONS (14)
  - Inflammation [Recovered/Resolved]
  - Eye pain [Recovered/Resolved]
  - Eye irritation [Recovered/Resolved]
  - Lacrimation increased [Recovered/Resolved]
  - Eye discharge [Recovered/Resolved]
  - Eyelid oedema [Recovered/Resolved]
  - Inflammation [Unknown]
  - Eye pain [Unknown]
  - Eye irritation [Unknown]
  - Lacrimation increased [Unknown]
  - Eye discharge [Unknown]
  - Eyelid oedema [Unknown]
  - Underdose [Unknown]
  - Incorrect drug administration duration [Unknown]
